FAERS Safety Report 17117383 (Version 1)
Quarter: 2019Q4

REPORT INFORMATION
  Report Type: Report from Study
  Country: US (occurrence: US)
  Receive Date: 20191205
  Receipt Date: 20191205
  Transmission Date: 20200122
  Serious: Yes (Other)
  Sender: FDA-Public Use
  Company Number: US-ACTELION-A-NJ2019-196107

PATIENT
  Sex: Female
  Weight: 42.18 kg

DRUGS (3)
  1. OPSUMIT [Suspect]
     Active Substance: MACITENTAN
     Indication: PULMONARY ARTERIAL HYPERTENSION
     Dosage: 10 MG, QD
     Route: 048
     Dates: start: 20190725
  2. ADEMPAS [Concomitant]
     Active Substance: RIOCIGUAT
     Dosage: 2 MG, TID
     Route: 048
     Dates: start: 201907
  3. ELIQUIS [Concomitant]
     Active Substance: APIXABAN

REACTIONS (8)
  - Hepatic enzyme increased [Unknown]
  - Liver disorder [Unknown]
  - Serum ferritin increased [Unknown]
  - Therapy non-responder [Unknown]
  - Dialysis [Unknown]
  - Pancreatic disorder [Unknown]
  - Blood count abnormal [Unknown]
  - Conjunctival discolouration [Not Recovered/Not Resolved]

NARRATIVE: CASE EVENT DATE: 2019
